FAERS Safety Report 8789628 (Version 1)
Quarter: 2012Q4

REPORT INFORMATION
  Report Type: Spontaneous
  Country: US (occurrence: None)
  Receive Date: 20120910
  Receipt Date: 20120910
  Transmission Date: 20130627
  Serious: Yes (Hospitalization)
  Sender: FDA-Public Use
  Company Number: None

PATIENT
  Age: 64 Year
  Sex: Male
  Weight: 68 kg

DRUGS (2)
  1. TARCEVA [Suspect]
     Indication: METASTATIC CHOLANGIOCARCINOMA
     Route: 048
     Dates: start: 20111018, end: 20120828
  2. TARCEVA [Suspect]
     Indication: METASTATIC CHOLANGIOCARCINOMA
     Route: 042
     Dates: start: 20111018, end: 20120828

REACTIONS (10)
  - Asthenia [None]
  - Fatigue [None]
  - Nausea [None]
  - Lethargy [None]
  - Abdominal pain [None]
  - Vomiting [None]
  - Diarrhoea [None]
  - Hypophagia [None]
  - Abdominal discomfort [None]
  - Faeces discoloured [None]
